FAERS Safety Report 8418078-7 (Version None)
Quarter: 2012Q2

REPORT INFORMATION
  Report Type: 
  Country: None (occurrence: None)
  Receive Date: 20120607
  Receipt Date: 20120529
  Transmission Date: 20120825
  Serious: Yes (Hospitalization)
  Sender: FDA-Public Use
  Company Number: US-JNJFOC-20120521431

PATIENT
  Age: 36 Year
  Sex: Female

DRUGS (10)
  1. ACETAMINOPHEN [Suspect]
     Indication: PRODUCT USED FOR UNKNOWN INDICATION
     Dosage: CHRONIC INTERMITTENT THERAPY
     Route: 065
  2. MIRTAZAPINE [Concomitant]
  3. OLANZAPINE [Concomitant]
  4. FENOFIBRATE [Concomitant]
  5. LEVETIRACETAM [Concomitant]
  6. ACETAMINOPHEN [Suspect]
     Route: 065
  7. DIVALPROEX SODIUM [Concomitant]
  8. PROMETHAZINE [Concomitant]
  9. LACTULOSE [Concomitant]
  10. OMEPRAZOLE [Concomitant]

REACTIONS (2)
  - METABOLIC ACIDOSIS [None]
  - PYROGLUTAMATE INCREASED [None]
